FAERS Safety Report 16406429 (Version 1)
Quarter: 2019Q2

REPORT INFORMATION
  Report Type: Spontaneous
  Country: RU (occurrence: RU)
  Receive Date: 20190607
  Receipt Date: 20190607
  Transmission Date: 20190711
  Serious: Yes (Other)
  Sender: FDA-Public Use
  Company Number: PHHY2019RU128410

PATIENT
  Age: 25 Year
  Sex: Male

DRUGS (3)
  1. METHOTREXATE. [Suspect]
     Active Substance: METHOTREXATE
     Indication: PSORIASIS
     Dosage: 10 MG, Q2W
     Route: 030
     Dates: end: 20190519
  2. FLUOCINOLONE [Concomitant]
     Active Substance: FLUOCINOLONE
     Indication: PSORIASIS
     Route: 061
  3. SALICYLIC ACID. [Concomitant]
     Active Substance: SALICYLIC ACID
     Indication: PSORIASIS
     Route: 061

REACTIONS (22)
  - Systemic inflammatory response syndrome [Recovered/Resolved]
  - Acute kidney injury [Recovered/Resolved]
  - Vomiting [Recovered/Resolved]
  - Cough [Recovered/Resolved]
  - Nephritis [Recovered/Resolved]
  - Sputum retention [Recovered/Resolved]
  - Varicella [Recovered/Resolved]
  - Rash generalised [Recovered/Resolved]
  - Dyspnoea [Recovered/Resolved]
  - Disseminated intravascular coagulation [Recovered/Resolved]
  - Poisoning [Recovered/Resolved]
  - Headache [Recovered/Resolved]
  - Nausea [Recovered/Resolved]
  - Visual acuity reduced [Recovered/Resolved]
  - Respiratory failure [Recovered/Resolved]
  - Varicella zoster pneumonia [Recovered/Resolved]
  - Back pain [Recovered/Resolved]
  - Pyrexia [Recovered/Resolved]
  - Condition aggravated [Recovered/Resolved]
  - Altered state of consciousness [Recovered/Resolved]
  - Brain oedema [Recovered/Resolved]
  - Hypoxic-ischaemic encephalopathy [Recovered/Resolved]

NARRATIVE: CASE EVENT DATE: 20190515
